FAERS Safety Report 23879349 (Version 1)
Quarter: 2024Q2

REPORT INFORMATION
  Report Type: Spontaneous
  Country: US (occurrence: None)
  Receive Date: 20240520
  Receipt Date: 20240520
  Transmission Date: 20240716
  Serious: Yes (Disabling)
  Sender: FDA-Public Use
  Company Number: None

PATIENT
  Age: 36 Year
  Sex: Female

DRUGS (7)
  1. ALPRAZOLAM [Suspect]
     Active Substance: ALPRAZOLAM
     Indication: Anxiety
     Dates: start: 20190410, end: 20231213
  2. ALPRAZOLAM ER [Suspect]
     Active Substance: ALPRAZOLAM
  3. Clonazopam [Concomitant]
  4. CYMBALTA [Concomitant]
     Active Substance: DULOXETINE HYDROCHLORIDE
  5. Trazadone [Concomitant]
  6. Slynd Vyvanse [Concomitant]
  7. MELATONIN [Concomitant]

REACTIONS (28)
  - Withdrawal syndrome [None]
  - Affect lability [None]
  - Depressed mood [None]
  - Chest pain [None]
  - Nervous system disorder [None]
  - Impulse-control disorder [None]
  - Derealisation [None]
  - Depersonalisation/derealisation disorder [None]
  - Feelings of worthlessness [None]
  - Suicidal ideation [None]
  - Agitation [None]
  - Irritability [None]
  - Agitation [None]
  - Gastrointestinal disorder [None]
  - Hyperhidrosis [None]
  - Asthenia [None]
  - Disorientation [None]
  - Insomnia [None]
  - Fatigue [None]
  - Balance disorder [None]
  - Visual impairment [None]
  - Eye pain [None]
  - Photophobia [None]
  - Dizziness [None]
  - Vertigo [None]
  - Fear [None]
  - Disturbance in attention [None]
  - Asthenia [None]

NARRATIVE: CASE EVENT DATE: 20231222
